FAERS Safety Report 6749655-7 (Version None)
Quarter: 2010Q2

REPORT INFORMATION
  Report Type: 
  Country: None (occurrence: None)
  Receive Date: 20100601
  Receipt Date: 20100521
  Transmission Date: 20101027
  Serious: Yes (Hospitalization)
  Sender: FDA-Public Use
  Company Number: B0656715A

PATIENT
  Sex: Male

DRUGS (4)
  1. ZOPHREN [Suspect]
     Indication: PREMEDICATION
     Dosage: 8MG CYCLIC
     Route: 042
     Dates: start: 20080605, end: 20080605
  2. OXALIPLATIN [Suspect]
     Indication: RECTAL CANCER METASTATIC
     Route: 042
     Dates: start: 20080605, end: 20080605
  3. SOLU-MEDROL [Concomitant]
     Indication: PREMEDICATION
     Dosage: 120MG CYCLIC
     Route: 042
     Dates: start: 20080605, end: 20080605
  4. RADIOTHERAPY [Concomitant]
     Indication: RECTAL CANCER METASTATIC
     Dates: start: 20080101, end: 20080101

REACTIONS (11)
  - ANAPHYLACTIC REACTION [None]
  - BLOOD PRESSURE IMMEASURABLE [None]
  - CHEST DISCOMFORT [None]
  - ERYTHEMA [None]
  - MALAISE [None]
  - MASTICATION DISORDER [None]
  - MYDRIASIS [None]
  - OEDEMA PERIPHERAL [None]
  - PARAESTHESIA [None]
  - PRESYNCOPE [None]
  - SALIVARY HYPERSECRETION [None]
